FAERS Safety Report 17880451 (Version 4)
Quarter: 2020Q3

REPORT INFORMATION
  Report Type: Spontaneous
  Country: US (occurrence: US)
  Receive Date: 20200610
  Receipt Date: 20200907
  Transmission Date: 20201103
  Serious: No
  Sender: FDA-Public Use
  Company Number: US-GLAXOSMITHKLINE-US2020AMR094254

PATIENT
  Sex: Female

DRUGS (3)
  1. ZEJULA [Suspect]
     Active Substance: NIRAPARIB
     Indication: OVARIAN CANCER
     Dosage: 300 MG, QD
     Dates: start: 20200427, end: 202005
  2. ZEJULA [Suspect]
     Active Substance: NIRAPARIB
     Dosage: 200 MG, QD
  3. ZEJULA [Suspect]
     Active Substance: NIRAPARIB
     Dosage: 200 MG, QD
     Dates: start: 202005

REACTIONS (8)
  - Hunger [Unknown]
  - Dyspnoea exertional [Unknown]
  - Platelet count decreased [Recovered/Resolved]
  - Nausea [Unknown]
  - Mass [Unknown]
  - Vomiting [Unknown]
  - Fatigue [Unknown]
  - Sinus operation [Unknown]
